FAERS Safety Report 5601854-3 (Version None)
Quarter: 2008Q1

REPORT INFORMATION
  Report Type: 
  Country: None (occurrence: None)
  Receive Date: 20080124
  Receipt Date: 20080116
  Transmission Date: 20080703
  Serious: Yes (Other)
  Sender: FDA-Public Use
  Company Number: GB-PFIZER INC-2008006081

PATIENT
  Age: 24 Year
  Sex: Male
  Weight: 89 kg

DRUGS (4)
  1. CHANTIX [Suspect]
     Indication: SMOKING CESSATION THERAPY
     Route: 048
     Dates: start: 20071112, end: 20071209
  2. BECLOMETHASONE DIPROPIONATE [Concomitant]
     Route: 055
  3. CITALOPRAM [Concomitant]
     Route: 048
  4. ALBUTEROL [Concomitant]
     Route: 055

REACTIONS (3)
  - AGITATION [None]
  - IMPULSIVE BEHAVIOUR [None]
  - INTENTIONAL SELF-INJURY [None]
